FAERS Safety Report 23858724 (Version 3)
Quarter: 2024Q2

REPORT INFORMATION
  Report Type: Spontaneous
  Country: HU (occurrence: HU)
  Receive Date: 20240515
  Receipt Date: 20240614
  Transmission Date: 20240715
  Serious: Yes (Other)
  Sender: FDA-Public Use
  Company Number: HU-CELLTRION INC.-2024HU011169

PATIENT

DRUGS (1)
  1. YUFLYMA [Suspect]
     Active Substance: ADALIMUMAB-AATY
     Indication: Product used for unknown indication
     Dosage: UNK
     Dates: start: 20231026

REACTIONS (4)
  - Acquired Von Willebrand^s disease [Unknown]
  - Cholecystitis [Unknown]
  - Factor V Leiden mutation [Unknown]
  - Condition aggravated [Unknown]
